FAERS Safety Report 9129617 (Version 3)
Quarter: 2013Q2

REPORT INFORMATION
  Report Type: Report from Study
  Country: US (occurrence: US)
  Receive Date: 20130228
  Receipt Date: 20130423
  Transmission Date: 20140414
  Serious: Yes (Hospitalization, Other)
  Sender: FDA-Public Use
  Company Number: US-ABBOTT-13P-163-1037436-00

PATIENT
  Age: 62 Year
  Sex: Male
  Weight: 94.43 kg

DRUGS (12)
  1. HUMIRA PEN [Suspect]
     Indication: PSORIATIC ARTHROPATHY
     Dates: start: 200811, end: 201103
  2. HUMIRA PEN [Suspect]
     Dates: start: 20130108, end: 201302
  3. HUMIRA PEN [Suspect]
     Dates: start: 201304
  4. ASPIRIN [Concomitant]
     Indication: CARDIAC VALVE DISEASE
  5. CRESTOR [Concomitant]
     Indication: HYPERLIPIDAEMIA
  6. HYDROCHLOROTHIAZIDE [Concomitant]
     Indication: PRODUCT USED FOR UNKNOWN INDICATION
  7. LISINOPRIL [Concomitant]
     Indication: HYPERTENSION
  8. VICODIN [Concomitant]
     Indication: PRODUCT USED FOR UNKNOWN INDICATION
  9. VITAMIN C [Concomitant]
     Indication: VITAMIN SUPPLEMENTATION
  10. VITAMIN D [Concomitant]
     Indication: BONE LOSS
  11. WARFARIN [Concomitant]
     Indication: PRODUCT USED FOR UNKNOWN INDICATION
  12. FLU VACCINE [Concomitant]
     Indication: PROPHYLAXIS
     Dates: start: 2012, end: 2012

REACTIONS (10)
  - Congenital aortic valve stenosis [Recovered/Resolved]
  - International normalised ratio increased [Recovered/Resolved]
  - Contusion [Recovered/Resolved]
  - Haematoma [Recovered/Resolved]
  - Bursa disorder [Recovered/Resolved]
  - Joint swelling [Not Recovered/Not Resolved]
  - Drug effect decreased [Not Recovered/Not Resolved]
  - Injection site anaesthesia [Recovered/Resolved]
  - Arthropathy [Not Recovered/Not Resolved]
  - Nasopharyngitis [Not Recovered/Not Resolved]
